FAERS Safety Report 16080117 (Version 1)
Quarter: 2019Q1

REPORT INFORMATION
  Report Type: Report from Study
  Country: US (occurrence: US)
  Receive Date: 20190315
  Receipt Date: 20190315
  Transmission Date: 20190418
  Serious: Yes (Other)
  Sender: FDA-Public Use
  Company Number: PHEH2019US010634

PATIENT
  Sex: Male

DRUGS (1)
  1. GLEEVEC [Suspect]
     Active Substance: IMATINIB MESYLATE
     Indication: PRODUCT USED FOR UNKNOWN INDICATION
     Dosage: UNK
     Route: 065

REACTIONS (11)
  - Insomnia [Unknown]
  - Seizure [Unknown]
  - Night sweats [Unknown]
  - Loss of consciousness [Unknown]
  - Diarrhoea [Unknown]
  - Vomiting [Unknown]
  - Alopecia [Unknown]
  - Drug ineffective [Unknown]
  - Asthenia [Unknown]
  - Pelvic pain [Unknown]
  - Depression [Unknown]
